FAERS Safety Report 5012465-5 (Version None)
Quarter: 2006Q2

REPORT INFORMATION
  Report Type: 
  Country: None (occurrence: None)
  Receive Date: 20060410
  Receipt Date: 20060220
  Transmission Date: 20061013
  Serious: Yes (Death)
  Sender: FDA-Public Use
  Company Number: 05P-163-0318063-00

PATIENT
  Age: 63 Year
  Sex: Male
  Weight: 116 kg

DRUGS (6)
  1. DEPAKOTE [Suspect]
     Indication: CONVULSION
     Dosage: 500 M G, 1 IN AM AND 2 IN PM, PER ORAL
     Route: 048
     Dates: start: 19920101, end: 20051111
  2. PHENYTOIN SODIUM [Concomitant]
  3. FOLIC ACID [Concomitant]
  4. LISINOPRIL [Concomitant]
  5. CHLORDIAZEPOXIDE [Concomitant]
  6. PRIMIDONE [Concomitant]

REACTIONS (1)
  - DEATH [None]
